FAERS Safety Report 6252960-4 (Version None)
Quarter: 2009Q3

REPORT INFORMATION
  Report Type: 
  Country: None (occurrence: None)
  Receive Date: 20090701
  Receipt Date: 20090622
  Transmission Date: 20100115
  Serious: Yes (Life-Threatening)
  Sender: FDA-Public Use
  Company Number: B0577884A

PATIENT
  Sex: Male

DRUGS (6)
  1. FONDAPARINUX [Suspect]
     Indication: ACUTE CORONARY SYNDROME
     Route: 058
     Dates: start: 20090602
  2. FENTANYL-100 [Suspect]
     Route: 065
     Dates: start: 20090602
  3. ASPIRIN [Concomitant]
     Dates: start: 20090602
  4. ATORVASTATIN CALCIUM [Concomitant]
     Route: 065
     Dates: start: 20090602
  5. CLOPIDOGREL [Concomitant]
     Route: 065
     Dates: start: 20090602
  6. ONDANSETRON [Concomitant]
     Route: 065
     Dates: start: 20090602

REACTIONS (5)
  - BRADYCARDIA [None]
  - CATHETER THROMBOSIS [None]
  - RESPIRATORY ACIDOSIS [None]
  - RESPIRATORY DEPRESSION [None]
  - SOMNOLENCE [None]
